FAERS Safety Report 7397065-4 (Version None)
Quarter: 2011Q1

REPORT INFORMATION
  Report Type: 
  Country: None (occurrence: None)
  Receive Date: 20110328
  Receipt Date: 20110315
  Transmission Date: 20110831
  Serious: Yes (Other)
  Sender: FDA-Public Use
  Company Number: 2010GW000064

PATIENT
  Sex: Male

DRUGS (1)
  1. ALDARA [Suspect]
     Indication: ANOGENITAL WARTS
     Dosage: 5 PCT; TOP
     Route: 061
     Dates: end: 20100101

REACTIONS (7)
  - APPLICATION SITE ANAESTHESIA [None]
  - ARRHYTHMIA [None]
  - APPLICATION SITE DRYNESS [None]
  - APPLICATION SITE INDURATION [None]
  - APPLICATION SITE EXFOLIATION [None]
  - SKIN WRINKLING [None]
  - HAIR GROWTH ABNORMAL [None]
